FAERS Safety Report 6177222-5 (Version None)
Quarter: 2009Q2

REPORT INFORMATION
  Report Type: 
  Country: None (occurrence: None)
  Receive Date: 20090504
  Receipt Date: 20090423
  Transmission Date: 20091009
  Serious: Yes (Other)
  Sender: FDA-Public Use
  Company Number: PHHY2009JP08693

PATIENT
  Age: 75 Year
  Sex: Male

DRUGS (3)
  1. NEORAL [Suspect]
     Indication: PSORIASIS
     Dosage: 50 MG ALTERNATE DAYS
     Route: 048
     Dates: start: 20071128, end: 20090219
  2. DIOVAN [Concomitant]
     Indication: HYPERTENSION
     Dosage: 80 MG
     Route: 048
     Dates: start: 20081203, end: 20090219
  3. SELBEX [Concomitant]
     Dosage: 50 MG
     Route: 048
     Dates: start: 20071219, end: 20090219

REACTIONS (2)
  - BRAIN STEM INFARCTION [None]
  - HEMIPARESIS [None]
